FAERS Safety Report 12300597 (Version 1)
Quarter: 2016Q2

REPORT INFORMATION
  Report Type: Spontaneous
  Country: US (occurrence: US)
  Receive Date: 20160425
  Receipt Date: 20160425
  Transmission Date: 20160815
  Serious: No
  Sender: FDA-Public Use
  Company Number: US-UCBSA-2015025590

PATIENT
  Sex: Female

DRUGS (1)
  1. CIMZIA [Suspect]
     Active Substance: CERTOLIZUMAB PEGOL
     Indication: PRODUCT USED FOR UNKNOWN INDICATION
     Dosage: 400 MG, EV 2 WEEKS(QOW); WEEKS 0, 2, AND 4; STRENGTH: 200 MG
     Route: 058
     Dates: start: 20150623

REACTIONS (2)
  - Feeling hot [Unknown]
  - Alopecia [Unknown]

NARRATIVE: CASE EVENT DATE: 2015
